FAERS Safety Report 4908032-1 (Version None)
Quarter: 2006Q1

REPORT INFORMATION
  Report Type: 
  Country: None (occurrence: None)
  Receive Date: 20060210
  Receipt Date: 20060208
  Transmission Date: 20060701
  Serious: Yes (Other)
  Sender: FDA-Public Use
  Company Number: 200610582EU

PATIENT
  Age: 42 Year
  Sex: Female

DRUGS (6)
  1. NICORETTE [Suspect]
     Indication: SMOKING CESSATION THERAPY
     Route: 002
     Dates: start: 20000401
  2. OXYCODONE [Concomitant]
     Indication: PAIN
     Route: 048
     Dates: start: 20050801
  3. ACETYLSALICYLIC ACID SRT [Concomitant]
     Indication: CARDIAC DISORDER
     Dosage: 2TAB PER DAY
     Route: 048
     Dates: start: 20040101
  4. IPRATROPIUM BROMIDE [Concomitant]
     Indication: CHRONIC OBSTRUCTIVE PULMONARY DISEASE
     Dosage: 4PUFF PER DAY
     Route: 055
     Dates: start: 20040101
  5. GLYCERYL TRINITRATE [Concomitant]
     Indication: CARDIAC DISORDER
     Dates: start: 20030101
  6. FLUTICASONE PROPIONATE [Concomitant]
     Indication: CHRONIC OBSTRUCTIVE PULMONARY DISEASE
     Dosage: 4PUFF PER DAY
     Route: 055
     Dates: start: 20040101

REACTIONS (3)
  - DEPENDENCE [None]
  - MEDICATION ERROR [None]
  - OVERDOSE [None]
